FAERS Safety Report 5832774-7 (Version None)
Quarter: 2008Q3

REPORT INFORMATION
  Report Type: 
  Country: None (occurrence: None)
  Receive Date: 20080804
  Receipt Date: 20080725
  Transmission Date: 20090109
  Serious: Yes (Other)
  Sender: FDA-Public Use
  Company Number: FR-JNJFOC-20080705903

PATIENT
  Age: 77 Year
  Sex: Male

DRUGS (2)
  1. ARESTAL [Suspect]
     Indication: GASTROINTESTINAL MOTILITY DISORDER
     Route: 048
  2. DEBRIDAT [Concomitant]
     Indication: GASTROINTESTINAL MOTILITY DISORDER

REACTIONS (2)
  - OESOPHAGITIS [None]
  - STOMATITIS [None]
